FAERS Safety Report 5500621-9 (Version None)
Quarter: 2007Q4

REPORT INFORMATION
  Report Type: 
  Country: None (occurrence: None)
  Receive Date: 20071018
  Receipt Date: 20070108
  Transmission Date: 20080405
  Serious: Yes (Other)
  Sender: FDA-Public Use
  Company Number: 2006150537

PATIENT
  Age: 92 Year
  Sex: Female
  Weight: 54.4 kg

DRUGS (6)
  1. GABAPENTIN [Suspect]
     Indication: SCIATICA
     Dosage: 1600 MG (400 MG, 4 IN 1 D), ORAL
     Route: 048
     Dates: start: 20060101, end: 20060101
  2. LYRICA [Suspect]
     Indication: SCIATICA
     Dosage: 150 MG (75 MG, 2 IN 1 D), ORAL
     Route: 048
     Dates: start: 20060612
  3. NEURONTIN [Suspect]
  4. FENTANYL [Suspect]
     Dosage: TOPICAL
     Route: 061
  5. PREMARIN [Concomitant]
  6. CALCIUM (CALCIUM) [Concomitant]

REACTIONS (4)
  - DRUG INEFFECTIVE [None]
  - HALLUCINATION [None]
  - PAIN [None]
  - PAIN IN EXTREMITY [None]
